FAERS Safety Report 23037011 (Version 1)
Quarter: 2023Q4

REPORT INFORMATION
  Report Type: Spontaneous
  Country: US (occurrence: US)
  Receive Date: 20231006
  Receipt Date: 20231006
  Transmission Date: 20240110
  Serious: No
  Sender: FDA-Public Use
  Company Number: US-AMGEN-USASP2023175711

PATIENT

DRUGS (1)
  1. PROLIA [Suspect]
     Active Substance: DENOSUMAB
     Indication: Osteoporosis
     Dosage: UNK
     Route: 065

REACTIONS (8)
  - Loose tooth [Unknown]
  - Mass [Unknown]
  - Dysphonia [Unknown]
  - Ill-defined disorder [Unknown]
  - Dyspnoea [Unknown]
  - Arthralgia [Unknown]
  - Headache [Unknown]
  - Rash [Unknown]
